FAERS Safety Report 17810854 (Version 1)
Quarter: 2020Q2

REPORT INFORMATION
  Report Type: Spontaneous
  Country: US (occurrence: US)
  Receive Date: 20200521
  Receipt Date: 20200521
  Transmission Date: 20200714
  Serious: No
  Sender: FDA-Public Use
  Company Number: US-BAYER-2020-091556

PATIENT
  Sex: Male

DRUGS (1)
  1. MIRALAX [Suspect]
     Active Substance: POLYETHYLENE GLYCOL 3350
     Indication: IRRITABLE BOWEL SYNDROME
     Dosage: UNK UNK, QD
     Route: 048

REACTIONS (3)
  - Gastrointestinal pain [Not Recovered/Not Resolved]
  - Product use in unapproved indication [Unknown]
  - Off label use [Unknown]
